FAERS Safety Report 8621242-5 (Version None)
Quarter: 2012Q3

REPORT INFORMATION
  Report Type: 
  Country: None (occurrence: None)
  Receive Date: 20120824
  Receipt Date: 20120821
  Transmission Date: 20120928
  Serious: Yes (Hospitalization, Disabling, Other)
  Sender: FDA-Public Use
  Company Number: CA-009507513-1206USA01241

PATIENT

DRUGS (1)
  1. ALENDRONATE SODIUM/CHOLECALCIFEROL [Suspect]
     Indication: OSTEOPOROSIS
     Dosage: 70 MG, QW
     Route: 048

REACTIONS (2)
  - ATYPICAL FEMUR FRACTURE [None]
  - FRACTURE [None]
